FAERS Safety Report 5134677-2 (Version None)
Quarter: 2006Q4

REPORT INFORMATION
  Report Type: 
  Country: None (occurrence: None)
  Receive Date: 20061025
  Receipt Date: 20061016
  Transmission Date: 20070319
  Serious: Yes (Other)
  Sender: FDA-Public Use
  Company Number: 2006AC01919

PATIENT
  Age: 53 Year
  Sex: Male

DRUGS (6)
  1. GEFITINIB [Suspect]
     Indication: LUNG ADENOCARCINOMA STAGE IV
     Route: 048
     Dates: start: 20040101
  2. GEFITINIB [Suspect]
     Route: 048
     Dates: start: 20040905
  3. GEFITINIB [Suspect]
     Route: 048
     Dates: start: 20041013
  4. GEFITINIB [Suspect]
     Route: 048
     Dates: start: 20041215
  5. GEFITINIB [Suspect]
     Dosage: DOSE DECREASED DUE TO SOMNOLENCE AND RISING HEPATIC TRANSAMINASES
     Route: 048
     Dates: start: 20050101
  6. GEFITINIB [Suspect]
     Route: 048
     Dates: start: 20050216

REACTIONS (7)
  - DRUG TOXICITY [None]
  - METASTASES TO CENTRAL NERVOUS SYSTEM [None]
  - ORTHOSTATIC HYPOTENSION [None]
  - PRESCRIBED OVERDOSE [None]
  - SOMNOLENCE [None]
  - THROMBOCYTOPENIA [None]
  - TRANSAMINASES INCREASED [None]
